FAERS Safety Report 17888217 (Version 1)
Quarter: 2020Q2

REPORT INFORMATION
  Report Type: Spontaneous
  Country: DE (occurrence: DE)
  Receive Date: 20200612
  Receipt Date: 20200612
  Transmission Date: 20200714
  Serious: Yes (Other)
  Sender: FDA-Public Use
  Company Number: DE-TEVA-2020-DE-1245907

PATIENT
  Age: 77 Year
  Sex: Female

DRUGS (4)
  1. VALSARTAN RATIOPHARM 80 MG [Suspect]
     Active Substance: VALSARTAN
     Dosage: 80 MILLIGRAM DAILY; IN THE EVENING
     Route: 048
     Dates: start: 2014, end: 2014
  2. VALSARTAN RATIOPHARM 160 MG [Suspect]
     Active Substance: VALSARTAN
     Dosage: 160 MILLIGRAM DAILY; IN THE EVENING
     Route: 048
     Dates: start: 2015
  3. VALSARTAN RATIOPHARM COMP 160/12.5 MG [Suspect]
     Active Substance: HYDROCHLOROTHIAZIDE\VALSARTAN
     Dosage: 1 DOSAGE FORMS DAILY; 1 DOSAGE FORM CONTAINS 160 MG VALSARTAN AND 12.5 MG HYDROCHLOROTHIAZIDE, IN TH
     Route: 048
     Dates: start: 2014
  4. VALSARTAN RATIOPHARM COMP 80/12.5 MG [Suspect]
     Active Substance: HYDROCHLOROTHIAZIDE\VALSARTAN
     Dosage: 1 DOSAGE FORMS DAILY; 1 DOSAGE FORM CONTAINS 80 MG VALSARTAN AND 12.5 MG HYDROCHLOROTHIAZIDE, IN THE
     Route: 048
     Dates: start: 2014, end: 2014

REACTIONS (2)
  - Product impurity [Unknown]
  - Colon cancer stage III [Unknown]

NARRATIVE: CASE EVENT DATE: 201701
